FAERS Safety Report 10555612 (Version 1)
Quarter: 2014Q4

REPORT INFORMATION
  Report Type: Spontaneous
  Country: US (occurrence: US)
  Receive Date: 20141030
  Receipt Date: 20141030
  Transmission Date: 20150529
  Serious: No
  Sender: FDA-Public Use
  Company Number: US-CUBIST PHARMACEUTICALS, INC.-2014CBST000307

PATIENT

DRUGS (4)
  1. CUBICIN [Suspect]
     Active Substance: DAPTOMYCIN
     Indication: ENTEROCOCCAL BACTERAEMIA
     Dosage: 8 MG/KG, UNK
     Route: 065
  2. CUBICIN [Suspect]
     Active Substance: DAPTOMYCIN
     Indication: OFF LABEL USE
     Dosage: 10 MG/KG, UNK
     Route: 065
  3. RIFAMPICIN [Concomitant]
     Active Substance: RIFAMPIN
     Indication: ENTEROCOCCAL BACTERAEMIA
     Dosage: UNK UNK, UNK
     Route: 065
  4. CEFTAROLINE FOSAMIL [Concomitant]
     Active Substance: CEFTAROLINE FOSAMIL
     Indication: ENTEROCOCCAL BACTERAEMIA
     Dosage: UNK UNK, UNK
     Route: 065

REACTIONS (1)
  - Antimicrobial susceptibility test resistant [Unknown]
